FAERS Safety Report 6367866-X (Version None)
Quarter: 2009Q3

REPORT INFORMATION
  Report Type: 
  Country: None (occurrence: None)
  Receive Date: 20090921
  Receipt Date: 20090910
  Transmission Date: 20100115
  Serious: Yes (Hospitalization)
  Sender: FDA-Public Use
  Company Number: US-GILEAD-2008-0018758

PATIENT
  Age: 40 Year
  Sex: Male
  Weight: 54.026 kg

DRUGS (6)
  1. TRUVADA [Suspect]
     Indication: ACQUIRED IMMUNODEFICIENCY SYNDROME
     Route: 048
     Dates: end: 20081010
  2. DARUNAVIR/R [Concomitant]
     Indication: ACQUIRED IMMUNODEFICIENCY SYNDROME
     Route: 048
  3. AZITHROMYCIN [Concomitant]
     Indication: PROPHYLAXIS
     Route: 048
  4. SULFAMETHOXAZOLE AND TRIMETHOPRIM [Concomitant]
  5. OPIOIDS [Concomitant]
  6. ATOVAQUONE [Concomitant]
     Indication: PROPHYLAXIS
     Route: 048

REACTIONS (4)
  - METABOLIC ACIDOSIS [None]
  - RENAL FAILURE [None]
  - SEPSIS SYNDROME [None]
  - SUPRAVENTRICULAR TACHYCARDIA [None]
